FAERS Safety Report 13739171 (Version 1)
Quarter: 2017Q3

REPORT INFORMATION
  Report Type: Spontaneous
  Country: US (occurrence: US)
  Receive Date: 20170710
  Receipt Date: 20170710
  Transmission Date: 20171127
  Serious: No
  Sender: FDA-Public Use
  Company Number: US-SAOL THERAPEUTICS-2017SAO00990

PATIENT
  Sex: Male
  Weight: 32.65 kg

DRUGS (4)
  1. BACLOFEN. [Suspect]
     Active Substance: BACLOFEN
     Dosage: 600.1 ?G, \DAY
     Route: 037
     Dates: start: 20121108
  2. OMEPRAZOLE. [Concomitant]
     Active Substance: OMEPRAZOLE
     Dosage: 10 MG, 1X/DAY
  3. LOSARTAN. [Concomitant]
     Active Substance: LOSARTAN
     Dosage: 50 MG, 1X/DAY
  4. BACLOFEN. [Concomitant]
     Active Substance: BACLOFEN
     Dosage: 1 TABLETS, 4X/DAY
     Dates: start: 20130515

REACTIONS (5)
  - Urinary tract infection [Unknown]
  - Asthenia [Unknown]
  - Therapy non-responder [Unknown]
  - Bladder spasm [Not Recovered/Not Resolved]
  - Muscle spasms [Unknown]

NARRATIVE: CASE EVENT DATE: 2013
